FAERS Safety Report 20073379 (Version 2)
Quarter: 2021Q4

REPORT INFORMATION
  Report Type: Report from Study
  Country: CL (occurrence: CL)
  Receive Date: 20211116
  Receipt Date: 20211220
  Transmission Date: 20220303
  Serious: Yes (Other)
  Sender: FDA-Public Use
  Company Number: CL-ABBVIE-21K-034-4160917-00

PATIENT
  Sex: Female

DRUGS (1)
  1. HUMIRA [Suspect]
     Active Substance: ADALIMUMAB
     Indication: Rheumatoid arthritis
     Route: 058
     Dates: start: 20120203, end: 202109

REACTIONS (4)
  - Anal fistula [Unknown]
  - Hidradenitis [Recovering/Resolving]
  - Secretion discharge [Unknown]
  - Pain [Unknown]

NARRATIVE: CASE EVENT DATE: 20190101
